FAERS Safety Report 16527972 (Version 1)
Quarter: 2019Q3

REPORT INFORMATION
  Report Type: Spontaneous
  Country: US (occurrence: US)
  Receive Date: 20190703
  Receipt Date: 20190703
  Transmission Date: 20191004
  Serious: Yes (Other)
  Sender: FDA-Public Use
  Company Number: US-AMREGENT-20191341

PATIENT
  Sex: Male

DRUGS (1)
  1. VENOFER [Suspect]
     Active Substance: IRON SUCROSE
     Dosage: UNKNOWN
     Route: 042

REACTIONS (11)
  - Decreased appetite [Unknown]
  - Dyspnoea [Unknown]
  - Burning sensation [Unknown]
  - Dehydration [Unknown]
  - Atrial fibrillation [Unknown]
  - Pneumoconiosis [Unknown]
  - Atrial flutter [Unknown]
  - Weight increased [Unknown]
  - Ageusia [Unknown]
  - Aortic stenosis [Unknown]
  - Nausea [Unknown]
